FAERS Safety Report 21395037 (Version 5)
Quarter: 2023Q1

REPORT INFORMATION
  Report Type: Report from Study
  Country: US (occurrence: US)
  Receive Date: 20220930
  Receipt Date: 20230116
  Transmission Date: 20230418
  Serious: Yes (Other)
  Sender: FDA-Public Use
  Company Number: US-NOVARTISTESTPH-NVSC2022US221129

PATIENT
  Sex: Male

DRUGS (1)
  1. ENTRESTO [Suspect]
     Active Substance: SACUBITRIL\VALSARTAN
     Indication: Product used for unknown indication
     Dosage: 1 DOSAGE FORM (49/51 MG), BID
     Route: 048

REACTIONS (7)
  - Renal impairment [Unknown]
  - Deafness neurosensory [Unknown]
  - Tinnitus [Unknown]
  - Hyperacusis [Unknown]
  - Pain in extremity [Unknown]
  - Weight increased [Unknown]
  - Blood pressure fluctuation [Unknown]
